FAERS Safety Report 19358494 (Version 1)
Quarter: 2021Q2

REPORT INFORMATION
  Report Type: Spontaneous
  Country: DE (occurrence: DE)
  Receive Date: 20210602
  Receipt Date: 20210602
  Transmission Date: 20210717
  Serious: Yes (Other)
  Sender: FDA-Public Use
  Company Number: DE-SUN PHARMACEUTICAL INDUSTRIES LTD-2021RR-298927

PATIENT
  Age: 26 Year
  Sex: Male
  Weight: 57 kg

DRUGS (1)
  1. PANTOPRAZOL BASICS 20 MG MAGENSAFTRESISTENTE  TABLETTEN [Suspect]
     Active Substance: PANTOPRAZOLE
     Indication: ABDOMINAL PAIN UPPER
     Dosage: 20 MILLIGRAM, DAILY, 20 MG / DAY
     Route: 048
     Dates: start: 20210225, end: 20210303

REACTIONS (4)
  - Abnormal faeces [Recovered/Resolved]
  - Painful respiration [Recovered/Resolved]
  - Abdominal pain [Recovered/Resolved]
  - Syncope [Recovered/Resolved]

NARRATIVE: CASE EVENT DATE: 20210301
